FAERS Safety Report 7815033-2 (Version None)
Quarter: 2011Q4

REPORT INFORMATION
  Report Type: 
  Country: None (occurrence: None)
  Receive Date: 20111013
  Receipt Date: 20111013
  Transmission Date: 20120403
  Serious: Yes (Life-Threatening, Hospitalization, Disabling)
  Sender: FDA-Public Use
  Company Number: None

PATIENT
  Sex: Female
  Weight: 62.5964 kg

DRUGS (3)
  1. TRUVADA [Suspect]
     Indication: HIV INFECTION
     Dosage: TRUVADA (2 DRUGS) ONCE DAILY ORAL (PILL)
     Route: 048
     Dates: start: 20110901
  2. ISENTRESS [Suspect]
     Dosage: ISENTRESS TWICE DAILY ORAL (PILL)
     Route: 048
     Dates: start: 20110901
  3. ZOLOFT [Suspect]
     Indication: DEPRESSION
     Dosage: ZOLOFT 150MG ONCE DAILY ORAL (PILL)
     Route: 048
     Dates: start: 20100701, end: 20110601

REACTIONS (4)
  - MEMORY IMPAIRMENT [None]
  - METABOLIC ACIDOSIS [None]
  - VISUAL IMPAIRMENT [None]
  - STRESS [None]
